FAERS Safety Report 9933055 (Version 1)
Quarter: 2014Q1

REPORT INFORMATION
  Report Type: Spontaneous
  Country: US (occurrence: US)
  Receive Date: 20140228
  Receipt Date: 20140228
  Transmission Date: 20141002
  Serious: No
  Sender: FDA-Public Use
  Company Number: US-GLAXOSMITHKLINE-A1046342A

PATIENT
  Sex: Male
  Weight: 77.3 kg

DRUGS (3)
  1. LAMICTAL [Suspect]
     Indication: MAJOR DEPRESSION
     Dosage: 150MG PER DAY
     Route: 065
     Dates: start: 2008
  2. EFFEXOR XR [Suspect]
     Indication: MAJOR DEPRESSION
     Dosage: 300MG PER DAY
     Route: 065
     Dates: start: 2007
  3. NO CONCURRENT MEDICATIONS [Concomitant]

REACTIONS (1)
  - Depression [Unknown]
